FAERS Safety Report 26191155 (Version 1)
Quarter: 2025Q4

REPORT INFORMATION
  Report Type: Spontaneous
  Country: JP (occurrence: JP)
  Receive Date: 20251223
  Receipt Date: 20251223
  Transmission Date: 20260117
  Serious: Yes (Death)
  Sender: MERCK SHARP & DOHME LLC
  Company Number: JP-009507513-2362034

PATIENT
  Age: 70 Year
  Sex: Male

DRUGS (4)
  1. KEYTRUDA [Suspect]
     Active Substance: PEMBROLIZUMAB
     Indication: Gastric cancer
     Route: 041
     Dates: start: 20250812, end: 202511
  2. CAPECITABINE [Concomitant]
     Active Substance: CAPECITABINE
  3. OXALIPLATIN [Concomitant]
     Active Substance: OXALIPLATIN
  4. TRASTUZUMAB [Concomitant]
     Active Substance: TRASTUZUMAB

REACTIONS (1)
  - Malignant neoplasm progression [Fatal]

NARRATIVE: CASE EVENT DATE: 20251101
